FAERS Safety Report 10421004 (Version 1)
Quarter: 2014Q3

REPORT INFORMATION
  Report Type: Spontaneous
  Country: US (occurrence: None)
  Receive Date: 20140718
  Receipt Date: 20140718
  Transmission Date: 20150326
  Serious: Yes (Other)
  Sender: FDA-Public Use
  Company Number: 1342270

PATIENT
  Sex: Male

DRUGS (2)
  1. BACLOFEN (BACLOFEN) [Suspect]
     Active Substance: BACLOFEN
     Indication: PRODUCT USED FOR UNKNOWN INDICATION
  2. KLONOPIN/CLONAZPAM [Suspect]
     Active Substance: CLONAZEPAM
     Indication: PRODUCT USED FOR UNKNOWN INDICATION

REACTIONS (5)
  - Incorrect dose administered [None]
  - Drug withdrawal syndrome [None]
  - Palpitations [None]
  - Depression [None]
  - Anxiety [None]
